FAERS Safety Report 23887215 (Version 1)
Quarter: 2024Q2

REPORT INFORMATION
  Report Type: Spontaneous
  Country: NL (occurrence: NL)
  Receive Date: 20240523
  Receipt Date: 20240523
  Transmission Date: 20240716
  Serious: Yes (Hospitalization, Other)
  Sender: FDA-Public Use
  Company Number: NL-SANDOZ-SDZ2024NL049934

PATIENT
  Age: 67 Year
  Sex: Male

DRUGS (1)
  1. OLMESARTAN MEDOXOMIL [Suspect]
     Active Substance: OLMESARTAN MEDOXOMIL
     Indication: Infection
     Dosage: 160 MG, QD; HIGHDOSE
     Route: 065

REACTIONS (4)
  - Respiratory failure [Unknown]
  - Infection [Unknown]
  - Bone marrow failure [Recovered/Resolved]
  - Intentional overdose [Unknown]
